FAERS Safety Report 6999836-2 (Version None)
Quarter: 2010Q3

REPORT INFORMATION
  Report Type: 
  Country: None (occurrence: None)
  Receive Date: 20100920
  Receipt Date: 20071114
  Transmission Date: 20110219
  Serious: Yes (Hospitalization, Other)
  Sender: FDA-Public Use
  Company Number: US-ASTRAZENECA-2007UW13953

PATIENT
  Age: 9082 Day
  Sex: Female
  Weight: 79.8 kg

DRUGS (9)
  1. SEROQUEL [Suspect]
     Indication: SLEEP DISORDER
     Dosage: 25 MG TO 75 MG
     Route: 048
     Dates: start: 20031201
  2. SEROQUEL [Suspect]
     Route: 048
     Dates: start: 20040101, end: 20060401
  3. EFFEXOR XR [Concomitant]
     Indication: DEPRESSION
     Dosage: 37.5 MG TO 187.5 MG
     Dates: start: 20031201
  4. EFFEXOR XR [Concomitant]
     Indication: ATTENTION DEFICIT/HYPERACTIVITY DISORDER
     Dosage: 37.5 MG TO 187.5 MG
     Dates: start: 20031201
  5. EFFEXOR XR [Concomitant]
     Indication: ANXIETY
     Dosage: 37.5 MG TO 187.5 MG
     Dates: start: 20031201
  6. NEURONTIN [Concomitant]
     Indication: NEURALGIA
     Route: 048
     Dates: start: 20040617
  7. AVANDAMET [Concomitant]
     Dosage: 2 MG/1000 MG, 2000 MG TO 4000 MG
     Dates: start: 20041004
  8. LANTUS [Concomitant]
     Dosage: 100 UNITS/ML SOLUTION, 20 UNITS TO 60 UNITS
     Route: 058
     Dates: start: 20060216
  9. HUMULIN R [Concomitant]
     Dosage: 100 UNIT/ML SOLUTION, 5 UNITS THREE TIMES A DAY
     Route: 058
     Dates: start: 20060302

REACTIONS (6)
  - DIABETES MELLITUS [None]
  - DIABETES MELLITUS INADEQUATE CONTROL [None]
  - DIABETIC KETOACIDOSIS [None]
  - HYPERGLYCAEMIA [None]
  - TYPE 1 DIABETES MELLITUS [None]
  - TYPE 2 DIABETES MELLITUS [None]
